FAERS Safety Report 15578358 (Version 1)
Quarter: 2018Q4

REPORT INFORMATION
  Report Type: Spontaneous
  Country: US (occurrence: US)
  Receive Date: 20181102
  Receipt Date: 20181102
  Transmission Date: 20190205
  Serious: No
  Sender: FDA-Public Use
  Company Number: US-TEVA-2018-US-969465

PATIENT
  Sex: Female
  Weight: 79 kg

DRUGS (1)
  1. MUPIRONT [Suspect]
     Active Substance: MUPIROCIN
     Indication: RASH
     Route: 061
     Dates: start: 2018, end: 2018

REACTIONS (2)
  - Rash [Recovering/Resolving]
  - Rash erythematous [Recovering/Resolving]

NARRATIVE: CASE EVENT DATE: 2018
